FAERS Safety Report 7050187-X (Version None)
Quarter: 2010Q4

REPORT INFORMATION
  Report Type: 
  Country: None (occurrence: None)
  Receive Date: 20101018
  Receipt Date: 20101011
  Transmission Date: 20110411
  Serious: Yes (Hospitalization)
  Sender: FDA-Public Use
  Company Number: US-PURDUE-USA-2010-0048989

PATIENT
  Sex: Female

DRUGS (1)
  1. OXYCONTIN [Suspect]
     Indication: PAIN
     Dosage: 80 MG, UNK

REACTIONS (6)
  - CHILLS [None]
  - GASTROOESOPHAGEAL REFLUX DISEASE [None]
  - INADEQUATE ANALGESIA [None]
  - OESOPHAGITIS [None]
  - PRODUCT TASTE ABNORMAL [None]
  - VOMITING [None]
